FAERS Safety Report 7151034-8 (Version None)
Quarter: 2010Q4

REPORT INFORMATION
  Report Type: 
  Country: None (occurrence: None)
  Receive Date: 20101210
  Receipt Date: 20101203
  Transmission Date: 20110411
  Serious: Yes (Death)
  Sender: FDA-Public Use
  Company Number: B0687598A

PATIENT
  Sex: Female
  Weight: 89 kg

DRUGS (5)
  1. TYVERB [Suspect]
     Indication: BREAST CANCER
     Dosage: 1250MG PER DAY
     Route: 048
     Dates: start: 20101028, end: 20101110
  2. XELODA [Suspect]
     Indication: BREAST CANCER
     Route: 065
     Dates: start: 20101028, end: 20101110
  3. ONDANSETRON [Concomitant]
     Indication: PROPHYLAXIS OF NAUSEA AND VOMITING
  4. DEXAMETHASONE [Concomitant]
  5. OMEPRAZOLE [Concomitant]
     Indication: PROPHYLAXIS

REACTIONS (9)
  - CARDIAC ARREST [None]
  - CARDIAC FAILURE [None]
  - CATHETER SITE HAEMORRHAGE [None]
  - ENTEROCOLITIS HAEMORRHAGIC [None]
  - HAEMATOMA [None]
  - HAEMORRHAGIC DIATHESIS [None]
  - OEDEMA PERIPHERAL [None]
  - PULMONARY EMBOLISM [None]
  - THROMBOSIS [None]
